FAERS Safety Report 8287742-5 (Version None)
Quarter: 2012Q2

REPORT INFORMATION
  Report Type: 
  Country: None (occurrence: None)
  Receive Date: 20120416
  Receipt Date: 20120411
  Transmission Date: 20120825
  Serious: Yes (Other)
  Sender: FDA-Public Use
  Company Number: US-PFIZER INC-2012090465

PATIENT
  Sex: Male

DRUGS (5)
  1. LIPITOR [Suspect]
     Indication: BLOOD CHOLESTEROL
     Dosage: 10 MG, 1X/DAY, NIGHTLY
     Route: 048
     Dates: start: 20120320, end: 20120322
  2. SYNTHROID [Concomitant]
  3. WARFARIN [Concomitant]
  4. RENAGEL [Concomitant]
  5. INSULIN [Concomitant]

REACTIONS (2)
  - HAEMATOCHEZIA [None]
  - ABDOMINAL PAIN UPPER [None]
